FAERS Safety Report 5866782-7 (Version None)
Quarter: 2008Q3

REPORT INFORMATION
  Report Type: 
  Country: None (occurrence: None)
  Receive Date: 20080902
  Receipt Date: 20080818
  Transmission Date: 20090109
  Serious: Yes (Death, Other)
  Sender: FDA-Public Use
  Company Number: US-ELI_LILLY_AND_COMPANY-US200802001320

PATIENT
  Sex: Male
  Weight: 103.18 kg

DRUGS (8)
  1. ALIMTA [Suspect]
     Indication: NON-SMALL CELL LUNG CANCER METASTATIC
     Dosage: 1000 MG, UNK
     Route: 042
     Dates: end: 20071224
  2. GEMZAR [Suspect]
     Indication: SQUAMOUS CELL CARCINOMA
  3. SEROQUEL [Concomitant]
     Dosage: 300 MG, EACH EVENING
  4. ADVAIR DISKUS 100/50 [Concomitant]
     Indication: CHRONIC OBSTRUCTIVE PULMONARY DISEASE
     Dosage: UNK, 2/D
  5. SPIRIVA [Concomitant]
     Indication: CHRONIC OBSTRUCTIVE PULMONARY DISEASE
     Dosage: UNK, DAILY (1/D)
  6. HALDOL [Concomitant]
     Dosage: 5 MG, AS NEEDED
  7. FOLIC ACID [Concomitant]
     Dosage: 1 MG, DAILY (1/D)
     Dates: start: 20071010
  8. VITAMIN B-12 [Concomitant]
     Dosage: 1000 MCG, EVERY 3 MONTHS
     Route: 030
     Dates: start: 20071010

REACTIONS (3)
  - CARDIAC DISORDER [None]
  - CARDIOVASCULAR DISORDER [None]
  - SUDDEN DEATH [None]
